FAERS Safety Report 9302628 (Version 1)
Quarter: 2013Q2

REPORT INFORMATION
  Report Type: Spontaneous
  Country: US (occurrence: US)
  Receive Date: 20130522
  Receipt Date: 20130522
  Transmission Date: 20140414
  Serious: No
  Sender: FDA-Public Use
  Company Number: US-009507513-1305USA009735

PATIENT
  Sex: Female

DRUGS (1)
  1. NUVARING [Suspect]
     Dosage: 1 RING/3 WEEKS
     Route: 067
     Dates: start: 201205

REACTIONS (3)
  - Device expulsion [Unknown]
  - Device breakage [Unknown]
  - No adverse event [Unknown]
